FAERS Safety Report 21906710 (Version 1)
Quarter: 2023Q1

REPORT INFORMATION
  Report Type: Spontaneous
  Country: US (occurrence: US)
  Receive Date: 20230125
  Receipt Date: 20230125
  Transmission Date: 20230418
  Serious: No
  Sender: FDA-Public Use
  Company Number: US-TEVA-2023-US-2846061

PATIENT
  Sex: Female

DRUGS (1)
  1. CARTIA XT [Suspect]
     Active Substance: DILTIAZEM HYDROCHLORIDE
     Indication: Product used for unknown indication
     Dosage: 300 MG
     Route: 065

REACTIONS (5)
  - Diarrhoea [Unknown]
  - Illness [Unknown]
  - Drug ineffective [Unknown]
  - Poor quality product administered [Unknown]
  - Product odour abnormal [Unknown]
